FAERS Safety Report 8818486 (Version 3)
Quarter: 2013Q1

REPORT INFORMATION
  Report Type: Spontaneous
  Country: US (occurrence: None)
  Receive Date: 20121003
  Receipt Date: 20130122
  Transmission Date: 20140127
  Serious: Yes (Hospitalization)
  Sender: FDA-Public Use
  Company Number: 2012SGN00428

PATIENT
  Age: 81 Year
  Sex: Female
  Weight: 47.3 kg

DRUGS (6)
  1. BRENTUXIMAB VEDOTIN [Suspect]
     Indication: HODGKIN^S DISEASE
     Route: 042
     Dates: start: 20120816, end: 20120906
  2. ZOLOFT (SERTRALINE HYDROCHLORIDE) [Concomitant]
  3. DIOVAN (VALSARTAN) [Concomitant]
  4. SYNTHROID (LEVOTHYROXINE SODIUM) [Concomitant]
  5. RANITIDINE (RANITIDINE HYDROCHLORIDE) [Concomitant]
  6. ATIVAN (LORAZEPAM) [Concomitant]

REACTIONS (11)
  - Pneumonia [None]
  - Malaise [None]
  - Cough [None]
  - Nausea [None]
  - Hypophagia [None]
  - Escherichia test positive [None]
  - Failure to thrive [None]
  - Bacterial test positive [None]
  - Urinary tract infection [None]
  - Pyelonephritis [None]
  - Diarrhoea [None]
